FAERS Safety Report 10063384 (Version 2)
Quarter: 2014Q2

REPORT INFORMATION
  Report Type: Spontaneous
  Country: US (occurrence: US)
  Receive Date: 20140407
  Receipt Date: 20140422
  Transmission Date: 20141212
  Serious: Yes (Other)
  Sender: FDA-Public Use
  Company Number: US-PURDUE-USA-2014-0112772

PATIENT
  Sex: Male

DRUGS (7)
  1. TRAMADOL (SIMILAR TO NDA 21-745) [Suspect]
     Indication: PAIN
  2. TRAMADOL (SIMILAR TO NDA 21-745) [Suspect]
     Indication: INSOMNIA
  3. OXYCONTIN (NDA 22-272) [Suspect]
     Indication: PAIN
  4. OXYCODONE HCL IR CAPSULES [Suspect]
     Indication: PAIN
  5. VICODIN [Suspect]
     Indication: PAIN
  6. AMBIEN [Suspect]
     Indication: PAIN
  7. ALEVE [Suspect]
     Indication: PAIN

REACTIONS (10)
  - Suicidal ideation [Unknown]
  - Hepatic pain [Unknown]
  - Renal pain [Unknown]
  - Dysstasia [Unknown]
  - Impaired work ability [Unknown]
  - Insomnia [Unknown]
  - Headache [Unknown]
  - Drug ineffective [Unknown]
  - Activities of daily living impaired [Unknown]
  - Fatigue [Unknown]
